FAERS Safety Report 8452163-9 (Version None)
Quarter: 2012Q2

REPORT INFORMATION
  Report Type: 
  Country: None (occurrence: None)
  Receive Date: 20120620
  Receipt Date: 20120611
  Transmission Date: 20120825
  Serious: Yes (Other)
  Sender: FDA-Public Use
  Company Number: JP-GLAXOSMITHKLINE-B0799644A

PATIENT
  Sex: Male

DRUGS (2)
  1. DEPAS [Concomitant]
     Indication: ANXIETY
     Dosage: 3MG PER DAY
     Route: 048
     Dates: start: 20090611
  2. PAXIL [Suspect]
     Indication: ANXIETY
     Dosage: 20MG PER DAY
     Route: 048
     Dates: start: 20090611

REACTIONS (1)
  - LOSS OF CONSCIOUSNESS [None]
